FAERS Safety Report 21631181 (Version 1)
Quarter: 2022Q4

REPORT INFORMATION
  Report Type: Report from Study
  Country: US (occurrence: US)
  Receive Date: 20221123
  Receipt Date: 20221123
  Transmission Date: 20230113
  Serious: No
  Sender: FDA-Public Use
  Company Number: US-ABBVIE-21K-163-4059431-00

PATIENT
  Age: 51 Year
  Sex: Male

DRUGS (4)
  1. HUMIRA [Suspect]
     Active Substance: ADALIMUMAB
     Indication: Psoriatic arthropathy
     Dosage: FORM STRENGTH: 40 MG
     Route: 058
     Dates: start: 202108
  2. HUMIRA [Suspect]
     Active Substance: ADALIMUMAB
     Dosage: FORM STRENGTH: 40 MG
     Route: 058
  3. HUMIRA [Suspect]
     Active Substance: ADALIMUMAB
     Dosage: FORM STRENGTH: 40 MG
     Route: 058
     Dates: end: 202201
  4. HUMIRA [Suspect]
     Active Substance: ADALIMUMAB
     Dosage: FORM STRENGTH: 40 MG
     Route: 058
     Dates: start: 20210806

REACTIONS (14)
  - Grip strength decreased [Recovered/Resolved]
  - Loss of personal independence in daily activities [Recovered/Resolved]
  - Discomfort [Unknown]
  - Mobility decreased [Recovering/Resolving]
  - Grip strength decreased [Recovered/Resolved]
  - Joint range of motion decreased [Unknown]
  - Pain [Unknown]
  - Mobility decreased [Recovered/Resolved]
  - Loss of personal independence in daily activities [Recovered/Resolved]
  - Dry eye [Unknown]
  - Wound infection [Not Recovered/Not Resolved]
  - Influenza [Unknown]
  - Nasopharyngitis [Unknown]
  - Discomfort [Recovered/Resolved]

NARRATIVE: CASE EVENT DATE: 20210801
